FAERS Safety Report 17870543 (Version 3)
Quarter: 2022Q1

REPORT INFORMATION
  Report Type: Spontaneous
  Country: US (occurrence: US)
  Receive Date: 20200608
  Receipt Date: 20220314
  Transmission Date: 20220423
  Serious: Yes (Other)
  Sender: FDA-Public Use
  Company Number: US-PFIZER INC-2020222187

PATIENT
  Age: 64 Year
  Sex: Female

DRUGS (2)
  1. IBRANCE [Suspect]
     Active Substance: PALBOCICLIB
     Dosage: UNK
     Dates: start: 20190115
  2. IBRANCE [Suspect]
     Active Substance: PALBOCICLIB
     Dosage: UNK
     Dates: start: 20190420

REACTIONS (6)
  - Second primary malignancy [Unknown]
  - Lung neoplasm malignant [Unknown]
  - Wound infection [Unknown]
  - Neoplasm progression [Unknown]
  - Scratch [Unknown]
  - Pyrexia [Unknown]
